FAERS Safety Report 20510146 (Version 1)
Quarter: 2022Q1

REPORT INFORMATION
  Report Type: Spontaneous
  Country: US (occurrence: US)
  Receive Date: 20220224
  Receipt Date: 20220224
  Transmission Date: 20220423
  Serious: No
  Sender: FDA-Public Use
  Company Number: US-RECORDATI RARE DISEASE INC.-2021005091

PATIENT

DRUGS (6)
  1. CYSTADANE [Suspect]
     Active Substance: BETAINE
     Indication: Product used for unknown indication
     Dosage: 6 SCOOPS PER DAY
     Route: 048
  2. CYSTADANE [Suspect]
     Active Substance: BETAINE
     Dosage: 12 SCOOPS PER DAY
     Route: 048
  3. CYSTADANE [Suspect]
     Active Substance: BETAINE
     Dosage: UNK
  4. VITAMIN B12 [Concomitant]
     Active Substance: CYANOCOBALAMIN
     Indication: Product used for unknown indication
  5. VITAMIN B6 [Concomitant]
     Active Substance: PYRIDOXINE HYDROCHLORIDE
     Indication: Product used for unknown indication
  6. ASPIRIN [Concomitant]
     Active Substance: ASPIRIN
     Indication: Thrombosis

REACTIONS (4)
  - Retching [Not Recovered/Not Resolved]
  - Vomiting [Not Recovered/Not Resolved]
  - Diarrhoea [Not Recovered/Not Resolved]
  - Product odour abnormal [Recovered/Resolved]
